FAERS Safety Report 6471356-3 (Version None)
Quarter: 2009Q4

REPORT INFORMATION
  Report Type: 
  Country: None (occurrence: None)
  Receive Date: 20091203
  Receipt Date: 20080522
  Transmission Date: 20100525
  Serious: Yes (Other)
  Sender: FDA-Public Use
  Company Number: GR-ELI_LILLY_AND_COMPANY-GR200802000400

PATIENT
  Age: 74 Year
  Sex: Female
  Weight: 67 kg

DRUGS (5)
  1. FORTEO [Suspect]
     Indication: OSTEOPOROSIS
     Dosage: 20 UG, DAILY (1/D)
     Route: 058
     Dates: start: 20070901
  2. DEPAKINE CHRONO [Concomitant]
     Indication: EPILEPSY
     Dosage: 500 MG, 3/D
     Route: 048
     Dates: start: 20010101
  3. LYRICA [Concomitant]
     Indication: EPILEPSY
     Dosage: 75 MG, 2/D
     Route: 048
     Dates: start: 20070101
  4. MIRAPEX [Concomitant]
     Indication: EXTRAPYRAMIDAL DISORDER
     Dosage: 0.18 MG, 1.5 TIMES DAILY
     Route: 048
     Dates: start: 20080130
  5. CALCIUM [Concomitant]
     Indication: OSTEOPOROSIS
     Route: 048

REACTIONS (3)
  - EXTRAPYRAMIDAL DISORDER [None]
  - MUSCLE ATROPHY [None]
  - MUSCULAR WEAKNESS [None]
